FAERS Safety Report 19849417 (Version 4)
Quarter: 2022Q1

REPORT INFORMATION
  Report Type: Report from Study
  Country: US (occurrence: US)
  Receive Date: 20210918
  Receipt Date: 20220307
  Transmission Date: 20220424
  Serious: Yes (Hospitalization, Other)
  Sender: FDA-Public Use
  Company Number: US-TAKEDA-2021TUS056496

PATIENT
  Sex: Female
  Weight: 159 kg

DRUGS (36)
  1. HUMAN IMMUNOGLOBULIN G [Suspect]
     Active Substance: HUMAN IMMUNOGLOBULIN G
     Indication: Myasthenia gravis
     Dosage: 30 GRAM, Q2WEEKS
     Route: 042
     Dates: start: 20210421
  2. ZOFRAN [Concomitant]
     Active Substance: ONDANSETRON HYDROCHLORIDE
  3. FAMOTIDINE [Concomitant]
     Active Substance: FAMOTIDINE
  4. ACETAMINOPHEN [Concomitant]
     Active Substance: ACETAMINOPHEN
  5. DEXTROSE [Concomitant]
     Active Substance: DEXTROSE
  6. DIPHENHYDRAMINE [Concomitant]
     Active Substance: DIPHENHYDRAMINE
  7. HEPARIN [Concomitant]
     Active Substance: HEPARIN SODIUM
  8. LIDOCAINE [Concomitant]
     Active Substance: LIDOCAINE
  9. SODIUM CHLORIDE [Concomitant]
     Active Substance: SODIUM CHLORIDE
  10. EPINEPHRINE [Concomitant]
     Active Substance: EPINEPHRINE
  11. METHOTREXATE [Concomitant]
     Active Substance: METHOTREXATE
  12. DULOXETINE [Concomitant]
     Active Substance: DULOXETINE
  13. TYLENOL [Concomitant]
     Active Substance: ACETAMINOPHEN
  14. OMEPRAZOLE [Concomitant]
     Active Substance: OMEPRAZOLE
  15. BENADRYL [Concomitant]
     Active Substance: DIPHENHYDRAMINE HYDROCHLORIDE
  16. MECLIZINE [Concomitant]
     Active Substance: MECLIZINE HYDROCHLORIDE
  17. CLINDESSE [Concomitant]
     Active Substance: CLINDAMYCIN PHOSPHATE
  18. TRIAMCINOLONE [Concomitant]
     Active Substance: TRIAMCINOLONE
  19. MUPIROCIN [Concomitant]
     Active Substance: MUPIROCIN
  20. PROAIR HFA [Concomitant]
     Active Substance: ALBUTEROL SULFATE
  21. FOLIC ACID [Concomitant]
     Active Substance: FOLIC ACID
  22. FIORICET [Concomitant]
     Active Substance: ACETAMINOPHEN\BUTALBITAL\CAFFEINE
  23. CELLCEPT [Concomitant]
     Active Substance: MYCOPHENOLATE MOFETIL
  24. PRAVASTATIN [Concomitant]
     Active Substance: PRAVASTATIN
  25. NORCO [Concomitant]
     Active Substance: ACETAMINOPHEN\HYDROCODONE BITARTRATE
  26. SYSTANE (HYPROMELLOSE 2910 (4000 MPA.S)) [Concomitant]
     Active Substance: HYPROMELLOSE 2910 (4000 MPA.S)
  27. DEPAKOTE ER [Concomitant]
     Active Substance: DIVALPROEX SODIUM
  28. MESTINON [Concomitant]
     Active Substance: PYRIDOSTIGMINE BROMIDE
  29. PROMETHAZINE [Concomitant]
     Active Substance: PROMETHAZINE HYDROCHLORIDE
  30. DIETARY SUPPLEMENT\PROBIOTICS [Concomitant]
     Active Substance: DIETARY SUPPLEMENT\PROBIOTICS
  31. BIOTIN [Concomitant]
     Active Substance: BIOTIN
  32. TRAZODONE HCL [Concomitant]
     Active Substance: TRAZODONE HYDROCHLORIDE
  33. VITAMINS [Concomitant]
     Active Substance: VITAMINS
  34. NEURONTIN [Concomitant]
     Active Substance: GABAPENTIN
  35. CALCIUM [Concomitant]
     Active Substance: CALCIUM
  36. VITAMIN D3 [Concomitant]
     Active Substance: CHOLECALCIFEROL

REACTIONS (2)
  - Hospitalisation [Unknown]
  - Myasthenia gravis [Unknown]
